FAERS Safety Report 4621212-8 (Version None)
Quarter: 2005Q1

REPORT INFORMATION
  Report Type: 
  Country: None (occurrence: None)
  Receive Date: 20050328
  Receipt Date: 20050322
  Transmission Date: 20050727
  Serious: Yes (Hospitalization, Disabling)
  Sender: FDA-Public Use
  Company Number: A044-002-005409

PATIENT
  Age: 85 Year
  Sex: Male

DRUGS (4)
  1. ARICEPT [Suspect]
     Indication: DEMENTIA ALZHEIMER'S TYPE
     Dosage: 10 MG, 1 IN 1 D, ORAL
     Route: 048
     Dates: start: 20040801, end: 20041001
  2. LORAZEPAM [Concomitant]
  3. RISPERDAL [Concomitant]
  4. ISMOX               (ISOSORBIDE MONONITRATE) [Concomitant]

REACTIONS (2)
  - ATRIOVENTRICULAR BLOCK [None]
  - CARDIAC ARREST [None]
